FAERS Safety Report 4342963-9 (Version None)
Quarter: 2004Q1

REPORT INFORMATION
  Report Type: 
  Country: None (occurrence: None)
  Receive Date: 20040325
  Receipt Date: 20031217
  Transmission Date: 20041129
  Serious: No
  Sender: FDA-Public Use
  Company Number: USA031254943

PATIENT
  Age: 79 Year
  Sex: Female
  Weight: 48 kg

DRUGS (4)
  1. FORTEO [Suspect]
     Dates: start: 20031001
  2. ARAVA [Concomitant]
  3. METHOTREXATE [Concomitant]
  4. PREDNISONE [Concomitant]

REACTIONS (3)
  - MUSCLE CRAMP [None]
  - ORAL PAIN [None]
  - PAIN [None]
